FAERS Safety Report 12294870 (Version 1)
Quarter: 2016Q2

REPORT INFORMATION
  Report Type: Report from Study
  Country: GR (occurrence: GR)
  Receive Date: 20160422
  Receipt Date: 20160422
  Transmission Date: 20160815
  Serious: Yes (Disabling)
  Sender: FDA-Public Use
  Company Number: PHHY2016GR053962

PATIENT
  Age: 34 Year
  Sex: Female

DRUGS (1)
  1. EXTAVIA [Suspect]
     Active Substance: INTERFERON BETA-1B
     Indication: MULTIPLE SCLEROSIS
     Dosage: UNK
     Route: 065
     Dates: start: 20160416

REACTIONS (4)
  - Gait disturbance [Unknown]
  - Influenza like illness [Unknown]
  - Abdominal pain upper [Unknown]
  - Arthralgia [Unknown]

NARRATIVE: CASE EVENT DATE: 20160417
